FAERS Safety Report 10970710 (Version 1)
Quarter: 2015Q1

REPORT INFORMATION
  Report Type: Spontaneous
  Country: GB (occurrence: GB)
  Receive Date: 20150331
  Receipt Date: 20150331
  Transmission Date: 20150721
  Serious: Yes (Hospitalization, Disabling)
  Sender: FDA-Public Use
  Company Number: GB-PFIZER INC-2015103750

PATIENT
  Age: 64 Year
  Sex: Female
  Weight: 55 kg

DRUGS (5)
  1. CO-DANTHRAMER [Concomitant]
     Dosage: UNK
  2. OMEPRAZOLE. [Concomitant]
     Active Substance: OMEPRAZOLE
     Dosage: UNK
  3. METOCLOPRAMIDE. [Concomitant]
     Active Substance: METOCLOPRAMIDE
     Dosage: UNK
  4. INLYTA [Suspect]
     Active Substance: AXITINIB
     Indication: METASTATIC RENAL CELL CARCINOMA
     Dosage: 2 MG, 2X/DAY
     Route: 048
     Dates: start: 20150210, end: 20150307
  5. CODEINE [Concomitant]
     Active Substance: CODEINE
     Dosage: UNK

REACTIONS (7)
  - Muscle twitching [Recovered/Resolved]
  - Daydreaming [Recovered/Resolved]
  - Cognitive disorder [Recovered/Resolved]
  - Slow speech [Recovered/Resolved]
  - Ataxia [Recovered/Resolved]
  - Neurological decompensation [Recovered/Resolved]
  - Confusional state [Recovered/Resolved]

NARRATIVE: CASE EVENT DATE: 20150303
